FAERS Safety Report 21744063 (Version 1)
Quarter: 2022Q4

REPORT INFORMATION
  Report Type: Spontaneous
  Country: FR (occurrence: FR)
  Receive Date: 20221218
  Receipt Date: 20221218
  Transmission Date: 20230113
  Serious: Yes (Other)
  Sender: FDA-Public Use
  Company Number: FR-JNJFOC-20211056503

PATIENT
  Age: 83 Year
  Sex: Female

DRUGS (4)
  1. MELPHALAN [Suspect]
     Active Substance: MELPHALAN
     Indication: Plasma cell myeloma
     Dosage: 2 MG/ INTAKE 8 CP OR 16 MG /DAY DURING 4D EVERY 5 WEEKS.
     Route: 065
     Dates: end: 20191022
  2. PREDNISONE [Suspect]
     Active Substance: PREDNISONE
     Indication: Plasma cell myeloma
     Dosage: 20 MG /INTAKE 4 PCS OR 80 MG PER DAY FOR 4 DAYS  EVERY 5 WEEKS
     Route: 065
     Dates: end: 20191022
  3. VELCADE [Suspect]
     Active Substance: BORTEZOMIB
     Indication: Plasma cell myeloma
     Dosage: 2.6 MILLIGRAM/SQ. METER, EVERY WEEK(2 WEEKS/CYCLE)
     Route: 065
     Dates: end: 20191022
  4. VELCADE [Suspect]
     Active Substance: BORTEZOMIB
     Dosage: 13 MILLIGRAM/SQ. METER(2 WEEKS/CYCLE )
     Route: 065
     Dates: end: 20191022

REACTIONS (2)
  - Cytopenia [Unknown]
  - Intentional product use issue [Unknown]

NARRATIVE: CASE EVENT DATE: 20191022
